FAERS Safety Report 15257340 (Version 2)
Quarter: 2018Q4

REPORT INFORMATION
  Report Type: Spontaneous
  Country: US (occurrence: US)
  Receive Date: 20180808
  Receipt Date: 20181009
  Transmission Date: 20190204
  Serious: Yes (Death, Other)
  Sender: FDA-Public Use
  Company Number: US-BAUSCH-BL-2018-021114

PATIENT
  Age: 55 Year
  Sex: Male

DRUGS (1)
  1. XIFAXAN [Suspect]
     Active Substance: RIFAXIMIN
     Indication: PRODUCT USED FOR UNKNOWN INDICATION
     Route: 065

REACTIONS (8)
  - General physical health deterioration [Unknown]
  - Hepatic failure [Unknown]
  - Pancreatitis [Unknown]
  - Ill-defined disorder [Unknown]
  - Inability to afford medication [Unknown]
  - Dialysis [Unknown]
  - Hospice care [Unknown]
  - Death [Fatal]

NARRATIVE: CASE EVENT DATE: 20180908
